FAERS Safety Report 11090727 (Version 1)
Quarter: 2015Q2

REPORT INFORMATION
  Report Type: Spontaneous
  Country: US (occurrence: None)
  Receive Date: 20150504
  Receipt Date: 20150504
  Transmission Date: 20150821
  Serious: No
  Sender: FDA-Public Use
  Company Number: None

PATIENT
  Age: 59 Year
  Sex: Female
  Weight: 56.7 kg

DRUGS (4)
  1. AMITRIPTYLINE HCL [Suspect]
     Active Substance: AMITRIPTYLINE
     Indication: NEURALGIA
     Dosage: 1 TAB AT BEDTIME, AT BEDTIME, TAKEN BY MOUTH
     Route: 048
     Dates: start: 20140115, end: 20150501
  2. AMITRIPTYLINE HCL [Suspect]
     Active Substance: AMITRIPTYLINE
     Dosage: 1 TAB AT BEDTIME, AT BEDTIME, TAKEN BY MOUTH
     Route: 048
     Dates: start: 20140115, end: 20150501
  3. ARMOUR [Concomitant]
  4. ZOLOFT [Concomitant]
     Active Substance: SERTRALINE HYDROCHLORIDE

REACTIONS (2)
  - Dizziness postural [None]
  - Presyncope [None]

NARRATIVE: CASE EVENT DATE: 20150502
